FAERS Safety Report 4511607-5 (Version None)
Quarter: 2004Q4

REPORT INFORMATION
  Report Type: 
  Country: None (occurrence: None)
  Receive Date: 20041129
  Receipt Date: 20041014
  Transmission Date: 20050328
  Serious: No
  Sender: FDA-Public Use
  Company Number: US-BRISTOL-MYERS SQUIBB COMPANY-12732533

PATIENT
  Age: 57 Year
  Sex: Female
  Weight: 63 kg

DRUGS (6)
  1. ABILIFY [Suspect]
     Indication: BIPOLAR DISORDER
     Dosage: 10 MG/DAY DEC-2003; INCREASED TO 20 MG FEB-2004; DECREASED TO 10 MG/DAY
     Route: 048
     Dates: start: 20031201
  2. WELLBUTRIN [Concomitant]
  3. CELEXA [Concomitant]
  4. EVISTA [Concomitant]
  5. VITAMIN C [Concomitant]
  6. MULTI-VITAMIN [Concomitant]

REACTIONS (1)
  - TREMOR [None]
